FAERS Safety Report 10706688 (Version 1)
Quarter: 2015Q1

REPORT INFORMATION
  Report Type: Spontaneous
  Country: CN (occurrence: CN)
  Receive Date: 20150113
  Receipt Date: 20150113
  Transmission Date: 20150721
  Serious: Yes (Other)
  Sender: FDA-Public Use
  Company Number: CN-BAYER-2015-003179

PATIENT
  Sex: Male

DRUGS (2)
  1. GLUCOBAY [Suspect]
     Active Substance: ACARBOSE
     Route: 048
  2. SCILIN M30 [Suspect]
     Active Substance: INSULIN HUMAN

REACTIONS (1)
  - Blood glucose increased [None]
